FAERS Safety Report 14251956 (Version 2)
Quarter: 2018Q1

REPORT INFORMATION
  Report Type: Spontaneous
  Country: GB (occurrence: GB)
  Receive Date: 20171205
  Receipt Date: 20180206
  Transmission Date: 20180508
  Serious: Yes (Other)
  Sender: FDA-Public Use
  Company Number: GB-009507513-1711GBR013428

PATIENT
  Age: 47 Year
  Sex: Female

DRUGS (1)
  1. PEMBROLIZUMAB. [Suspect]
     Active Substance: PEMBROLIZUMAB
     Indication: METASTATIC CHORIOCARCINOMA
     Dosage: 2 MG/KG, EVERY 2 WEEKS
     Dates: start: 201612, end: 201706

REACTIONS (3)
  - Neutropenia [Unknown]
  - Off label use [Unknown]
  - Synovitis [Unknown]

NARRATIVE: CASE EVENT DATE: 201612
